FAERS Safety Report 5503178-1 (Version None)
Quarter: 2007Q4

REPORT INFORMATION
  Report Type: 
  Country: None (occurrence: None)
  Receive Date: 20071029
  Receipt Date: 20071029
  Transmission Date: 20080405
  Serious: Yes (Hospitalization)
  Sender: FDA-Public Use
  Company Number: None

PATIENT
  Age: 64 Year
  Sex: Male

DRUGS (1)
  1. ETOPOSIDE [Suspect]
     Indication: NEOPLASM MALIGNANT
     Dosage: 240MG ONCE IV
     Route: 042
     Dates: start: 20071022, end: 20071022

REACTIONS (1)
  - SYNCOPE [None]
